FAERS Safety Report 7090266-4 (Version None)
Quarter: 2010Q4

REPORT INFORMATION
  Report Type: 
  Country: None (occurrence: None)
  Receive Date: 20101104
  Receipt Date: 20101104
  Transmission Date: 20110411
  Serious: Yes (Other)
  Sender: FDA-Public Use
  Company Number: None

PATIENT
  Sex: Female
  Weight: 74.8435 kg

DRUGS (2)
  1. CYCLOBENZAPRINE HCL [Suspect]
     Indication: ARTHRALGIA
     Dosage: 1 EVERY 4 TO 6 HOURS PO
     Route: 048
     Dates: start: 20101027, end: 20101027
  2. KETOROLAC TROMETHAMINE [Concomitant]

REACTIONS (4)
  - CHEST DISCOMFORT [None]
  - HEART RATE INCREASED [None]
  - HYPOAESTHESIA [None]
  - PALPITATIONS [None]
